FAERS Safety Report 8199082-3 (Version None)
Quarter: 2012Q1

REPORT INFORMATION
  Report Type: 
  Country: None (occurrence: None)
  Receive Date: 20120309
  Receipt Date: 20120229
  Transmission Date: 20120608
  Serious: Yes (Death, Life-Threatening)
  Sender: FDA-Public Use
  Company Number: DE-ROCHE-1045458

PATIENT
  Age: 70 Year
  Sex: Male
  Weight: 90 kg

DRUGS (1)
  1. ACTIVASE [Suspect]
     Indication: CEREBRAL ISCHAEMIA
     Route: 042

REACTIONS (3)
  - BRAIN OEDEMA [None]
  - ANGIOEDEMA [None]
  - ENDOTRACHEAL INTUBATION [None]
